FAERS Safety Report 9492345 (Version 1)
Quarter: 2013Q3

REPORT INFORMATION
  Report Type: Spontaneous
  Country: KR (occurrence: KR)
  Receive Date: 20130830
  Receipt Date: 20130830
  Transmission Date: 20140515
  Serious: Yes (Life-Threatening, Hospitalization)
  Sender: FDA-Public Use
  Company Number: KR-WATSON-2013-15070

PATIENT
  Sex: Male

DRUGS (4)
  1. DOBUTAMINE HYDROCHLORIDE (WATSON LABORATORIES) [Suspect]
     Indication: BLOOD PRESSURE SYSTOLIC DECREASED
     Dosage: 10 ?G/KG/MIN
     Route: 042
  2. DOBUTAMINE HYDROCHLORIDE (WATSON LABORATORIES) [Suspect]
     Dosage: 5 ?G/KG/MIN
     Route: 042
  3. NOREPINEPHRINE [Suspect]
     Indication: HAEMODYNAMIC INSTABILITY
     Dosage: 0.01 ?G/KG/MIN
     Route: 042
  4. NOREPINEPHRINE [Suspect]
     Indication: BLOOD PRESSURE SYSTOLIC DECREASED

REACTIONS (3)
  - Cardiogenic shock [Recovered/Resolved]
  - Cardiac function disturbance postoperative [Recovered/Resolved]
  - Left ventricle outflow tract obstruction [Recovered/Resolved]
